FAERS Safety Report 14750204 (Version 2)
Quarter: 2018Q2

REPORT INFORMATION
  Report Type: Spontaneous
  Country: CN (occurrence: CN)
  Receive Date: 20180412
  Receipt Date: 20180417
  Transmission Date: 20180711
  Serious: Yes (Other)
  Sender: FDA-Public Use
  Company Number: CN-009507513-1804CHN004162

PATIENT
  Sex: Female

DRUGS (3)
  1. MARVELON [Suspect]
     Active Substance: DESOGESTREL\ETHINYL ESTRADIOL
     Indication: MENSTRUATION IRREGULAR
     Dosage: UNK
     Route: 048
  2. MARVELON [Suspect]
     Active Substance: DESOGESTREL\ETHINYL ESTRADIOL
     Indication: METRORRHAGIA
  3. MARVELON [Suspect]
     Active Substance: DESOGESTREL\ETHINYL ESTRADIOL
     Indication: UTERINE HAEMORRHAGE

REACTIONS (5)
  - Diabetes mellitus [Unknown]
  - Product use in unapproved indication [Unknown]
  - Off label use [Unknown]
  - Abnormal withdrawal bleeding [Unknown]
  - Hypotension [Unknown]
